FAERS Safety Report 6870935-9 (Version None)
Quarter: 2010Q3

REPORT INFORMATION
  Report Type: 
  Country: None (occurrence: None)
  Receive Date: 20100723
  Receipt Date: 20100721
  Transmission Date: 20110219
  Serious: Yes (Life-Threatening, Hospitalization)
  Sender: FDA-Public Use
  Company Number: BR-BRISTOL-MYERS SQUIBB COMPANY-15203367

PATIENT
  Age: 13 Year
  Sex: Female

DRUGS (3)
  1. DASATINIB [Suspect]
     Indication: LEUKAEMIA
     Route: 048
     Dates: start: 20100419
  2. CLAVULANATE POTASSIUM [Concomitant]
     Dates: start: 20100712
  3. AMOXICILLIN [Concomitant]
     Dates: start: 20100712

REACTIONS (2)
  - MALIGNANT NEOPLASM PROGRESSION [None]
  - RECTAL HAEMORRHAGE [None]
